FAERS Safety Report 8485962 (Version 2)
Quarter: 2013Q2

REPORT INFORMATION
  Report Type: Report from Study
  Country: AU (occurrence: AU)
  Receive Date: 20120331
  Receipt Date: 20130604
  Transmission Date: 20140414
  Serious: Yes (Hospitalization, Other)
  Sender: FDA-Public Use
  Company Number: PHHY2010AU78340

PATIENT
  Age: 31 Year
  Sex: Male

DRUGS (6)
  1. CLOZARIL [Suspect]
     Dosage: 550 MG
     Dates: start: 20050826
  2. CLOZARIL [Suspect]
     Dosage: 350 MG/DAY
     Dates: end: 20101230
  3. CLOZARIL [Suspect]
     Dosage: UNK
  4. CLOZARIL [Suspect]
     Dosage: UNK
     Dates: start: 20130404
  5. LORAZEPAM [Concomitant]
  6. SEROQUEL [Concomitant]
     Dosage: UNK UKN, UNK
     Route: 048
     Dates: start: 20110924

REACTIONS (10)
  - Anxiety [Unknown]
  - Schizophrenia [Unknown]
  - Paranoia [Unknown]
  - Psychotic disorder [Unknown]
  - Hallucination, auditory [Not Recovered/Not Resolved]
  - Antipsychotic drug level increased [Unknown]
  - Eosinopenia [Not Recovered/Not Resolved]
  - Cholinergic syndrome [Unknown]
  - Palpitations [Unknown]
  - Rebound effect [Unknown]
